FAERS Safety Report 8339892-2 (Version None)
Quarter: 2012Q2

REPORT INFORMATION
  Report Type: 
  Country: None (occurrence: None)
  Receive Date: 20120507
  Receipt Date: 20120427
  Transmission Date: 20120825
  Serious: No
  Sender: FDA-Public Use
  Company Number: US-BAYER-2012-041970

PATIENT
  Age: 66 Year
  Sex: Female
  Weight: 68.027 kg

DRUGS (9)
  1. CALCIUM W/MAGNESIUM [Concomitant]
  2. VITAMIN B COMPLEX CAP [Concomitant]
  3. NAPROXEN SODIUM [Suspect]
     Indication: PARAESTHESIA
     Dosage: 2 DF, BID, BOTTLE COUNT 24S
     Route: 048
     Dates: start: 20120420, end: 20120426
  4. FISH OIL [Concomitant]
  5. LIPITOR [Concomitant]
  6. NAPROXEN SODIUM [Suspect]
     Indication: HYPOAESTHESIA
     Dosage: 2 DF, BID, BOTTLE COUNT 24S
     Route: 048
     Dates: start: 20120420, end: 20120426
  7. VITAMIN C [Concomitant]
  8. VITAMIN D [Concomitant]
  9. OMEPRAZOLE [Concomitant]

REACTIONS (4)
  - HYPOAESTHESIA [None]
  - DEPRESSED MOOD [None]
  - PARAESTHESIA [None]
  - ASTHENIA [None]
